FAERS Safety Report 12499503 (Version 3)
Quarter: 2016Q3

REPORT INFORMATION
  Report Type: Report from Study
  Country: US (occurrence: US)
  Receive Date: 20160627
  Receipt Date: 20160824
  Transmission Date: 20161109
  Serious: Yes (Other)
  Sender: FDA-Public Use
  Company Number: US-BIOGEN-2016BI00253316

PATIENT
  Age: 53 Year
  Sex: Male

DRUGS (1)
  1. TYSABRI [Suspect]
     Active Substance: NATALIZUMAB
     Indication: MULTIPLE SCLEROSIS
     Route: 042
     Dates: start: 20080128, end: 20160517

REACTIONS (2)
  - Progressive multifocal leukoencephalopathy [Unknown]
  - Intervertebral disc protrusion [Unknown]

NARRATIVE: CASE EVENT DATE: 20160525
